FAERS Safety Report 12426589 (Version 1)
Quarter: 2016Q2

REPORT INFORMATION
  Report Type: Spontaneous
  Country: US (occurrence: US)
  Receive Date: 20160601
  Receipt Date: 20160601
  Transmission Date: 20160815
  Serious: No
  Sender: FDA-Public Use
  Company Number: US-SHIRE-US201605778

PATIENT
  Sex: Male
  Weight: 20.41 kg

DRUGS (3)
  1. VENTOLIN [Concomitant]
     Active Substance: ALBUTEROL SULFATE
     Indication: ASTHMA
     Dosage: UNK, AS REQ^D (AEROSOL INHALER AS NEEDED)
     Route: 055
     Dates: start: 2009
  2. VYVANSE [Suspect]
     Active Substance: LISDEXAMFETAMINE DIMESYLATE
     Indication: ATTENTION DEFICIT/HYPERACTIVITY DISORDER
     Dosage: 20 MG, 1X/DAY:QD
     Route: 048
  3. FLOVENT [Concomitant]
     Active Substance: FLUTICASONE PROPIONATE
     Indication: ASTHMA
     Dosage: UNK, 2X/DAY:BID (2 PUFFS OF AEROSAL)
     Route: 055
     Dates: start: 2009

REACTIONS (2)
  - Wrong technique in product usage process [Not Recovered/Not Resolved]
  - No adverse event [Not Recovered/Not Resolved]
